FAERS Safety Report 11614999 (Version 1)
Quarter: 2015Q4

REPORT INFORMATION
  Report Type: Spontaneous
  Country: US (occurrence: None)
  Receive Date: 20151008
  Receipt Date: 20151008
  Transmission Date: 20160304
  Serious: Yes (Hospitalization)
  Sender: FDA-Public Use
  Company Number: None

PATIENT
  Age: 68 Year
  Sex: Male
  Weight: 125.6 kg

DRUGS (4)
  1. CASODEX [Suspect]
     Active Substance: BICALUTAMIDE
     Dosage: CASODEX 50MG PO X 6 MOS
     Route: 048
     Dates: end: 20140602
  2. ASPIRIN. [Concomitant]
     Active Substance: ASPIRIN
  3. FISH OIL [Concomitant]
     Active Substance: FISH OIL
  4. LEUPROLIDE ACETATE. [Suspect]
     Active Substance: LEUPROLIDE ACETATE
     Dosage: 22.5MG INJECTION Q3MOS X 2
     Dates: end: 20140602

REACTIONS (8)
  - Treatment noncompliance [None]
  - Rectal haemorrhage [None]
  - Constipation [None]
  - Haemoglobin decreased [None]
  - Haematochezia [None]
  - Large intestine polyp [None]
  - Haematocrit decreased [None]
  - Fatigue [None]

NARRATIVE: CASE EVENT DATE: 20150911
